FAERS Safety Report 12608668 (Version 4)
Quarter: 2017Q1

REPORT INFORMATION
  Report Type: Spontaneous
  Country: US (occurrence: US)
  Receive Date: 20160729
  Receipt Date: 20170103
  Transmission Date: 20170428
  Serious: Yes (Hospitalization)
  Sender: FDA-Public Use
  Company Number: US-RELYPSA-RLY2016001548

PATIENT
  Age: 84 Year
  Sex: Female

DRUGS (12)
  1. COENZYME Q10 [Concomitant]
     Active Substance: UBIDECARENONE
     Dosage: UNK, QD (MORNING)
  2. COREG [Concomitant]
     Active Substance: CARVEDILOL
     Dosage: 6.25 MG, BID
  3. MULTAQ [Concomitant]
     Active Substance: DRONEDARONE
     Dosage: 400 MG, BID
  4. MULTIVITAMIN                       /00097801/ [Concomitant]
     Active Substance: VITAMINS
  5. SYNTHROID [Concomitant]
     Active Substance: LEVOTHYROXINE SODIUM
     Dosage: 50 MG, UNKNOWN
  6. VITRON C [Concomitant]
     Active Substance: DIETARY SUPPLEMENT
     Indication: ANAEMIA
     Dosage: 65 MG, BID
  7. ASPIRIN                            /00002701/ [Concomitant]
     Active Substance: ASPIRIN
     Dosage: 81 MG, QD (MORNING)
  8. NAMENDA [Concomitant]
     Active Substance: MEMANTINE HYDROCHLORIDE
     Dosage: 5 MG, UNKNOWN
  9. VELTASSA [Suspect]
     Active Substance: PATIROMER
     Indication: BLOOD POTASSIUM INCREASED
     Dosage: UNK
     Route: 048
     Dates: start: 201605, end: 201605
  10. CALCIUM [Concomitant]
     Active Substance: CALCIUM
     Dosage: 500 MG, UNKNOWN
  11. FOLVITE                            /00024201/ [Concomitant]
     Dosage: 400 MCG, UNKNOWN
  12. ULORIC [Concomitant]
     Active Substance: FEBUXOSTAT
     Dosage: 40 MG, QD (EVENING)

REACTIONS (2)
  - Clostridium difficile infection [Unknown]
  - Pneumonia [Recovered/Resolved]

NARRATIVE: CASE EVENT DATE: 20160601
